FAERS Safety Report 9267081 (Version 2)
Quarter: 2013Q2

REPORT INFORMATION
  Report Type: Spontaneous
  Country: FR (occurrence: FR)
  Receive Date: 20130502
  Receipt Date: 20130508
  Transmission Date: 20140414
  Serious: Yes (Hospitalization)
  Sender: FDA-Public Use
  Company Number: FR-PFIZER INC-2013130756

PATIENT
  Age: 78 Year
  Sex: Male

DRUGS (3)
  1. ZITHROMAX [Suspect]
     Dosage: 250 MG, 1X/DAY
     Route: 048
     Dates: start: 20130318, end: 20130328
  2. CEFTRIAXONE PANPHARMA [Suspect]
     Dosage: 2 G, 1X/DAY
     Route: 042
     Dates: start: 20130318, end: 20130328
  3. FLAGYL [Suspect]
     Dosage: 500 MG, 3X/DAY
     Route: 048
     Dates: start: 20130320, end: 20130328

REACTIONS (2)
  - Lipase increased [Recovered/Resolved]
  - Amylase increased [Recovered/Resolved]
